FAERS Safety Report 4651066-5 (Version None)
Quarter: 2005Q2

REPORT INFORMATION
  Report Type: 
  Country: None (occurrence: None)
  Receive Date: 20050503
  Receipt Date: 20050329
  Transmission Date: 20051028
  Serious: Yes (Hospitalization, Other)
  Sender: FDA-Public Use
  Company Number: PHBS2005JP04644

PATIENT
  Age: 51 Year
  Sex: Female
  Weight: 45 kg

DRUGS (2)
  1. VOLTAREN [Suspect]
     Indication: CONTUSION
     Dosage: 37.5 MG, BID
     Route: 048
     Dates: start: 20050225, end: 20050228
  2. GLORIAMIN [Concomitant]
     Dosage: 1 G/DAY
     Route: 048
     Dates: start: 20050226, end: 20050228

REACTIONS (12)
  - ABDOMINAL PAIN [None]
  - ANGIOPATHY [None]
  - BLOOD ALBUMIN DECREASED [None]
  - CLOSTRIDIUM COLITIS [None]
  - DIARRHOEA [None]
  - ENTEROCOLITIS [None]
  - HAEMATOCHEZIA [None]
  - LARGE INTESTINAL ULCER [None]
  - OEDEMA MUCOSAL [None]
  - OEDEMA PERIPHERAL [None]
  - PROTEIN-LOSING GASTROENTEROPATHY [None]
  - WEIGHT INCREASED [None]
